FAERS Safety Report 14836908 (Version 2)
Quarter: 2018Q4

REPORT INFORMATION
  Report Type: Spontaneous
  Country: FR (occurrence: FR)
  Receive Date: 20180502
  Receipt Date: 20181024
  Transmission Date: 20190204
  Serious: Yes (Other)
  Sender: FDA-Public Use
  Company Number: FR-MERCK KGAA-2046983

PATIENT
  Age: 63 Year
  Sex: Female

DRUGS (1)
  1. EUTHYROX [Suspect]
     Active Substance: LEVOTHYROXINE SODIUM
     Indication: THYROID DISORDER

REACTIONS (21)
  - Head injury [None]
  - Fatigue [None]
  - Arthralgia [None]
  - Irritability [None]
  - Asthenia [None]
  - Thyroid function test abnormal [None]
  - Apathy [None]
  - Fall [None]
  - C-reactive protein increased [None]
  - Anxiety [None]
  - Vertigo [None]
  - Syncope [None]
  - Polyuria [None]
  - Depression [None]
  - Nervousness [None]
  - Alopecia [None]
  - Headache [None]
  - Palpitations [None]
  - Blood thyroid stimulating hormone decreased [None]
  - Shock [None]
  - Mood altered [None]

NARRATIVE: CASE EVENT DATE: 20170627
